FAERS Safety Report 24202977 (Version 1)
Quarter: 2024Q3

REPORT INFORMATION
  Report Type: Spontaneous
  Country: US (occurrence: US)
  Receive Date: 20240813
  Receipt Date: 20240813
  Transmission Date: 20241016
  Serious: No
  Sender: SPECGX
  Company Number: US-SPECGX-T202400606

PATIENT
  Sex: Female
  Weight: 91 kg

DRUGS (2)
  1. OXYCODONE [Suspect]
     Active Substance: OXYCODONE
     Indication: Neuralgia
     Dosage: 15 MILLIGRAM (EVERY 4-6 HOURS)
     Route: 048
  2. AMBIEN [Concomitant]
     Active Substance: ZOLPIDEM TARTRATE
     Indication: Sleep disorder
     Dosage: 10 MILLIGRAM, QHS
     Route: 065

REACTIONS (3)
  - Disturbance in attention [Unknown]
  - Blood test abnormal [Unknown]
  - Product availability issue [Unknown]
